FAERS Safety Report 9374570 (Version 1)
Quarter: 2013Q2

REPORT INFORMATION
  Report Type: Spontaneous
  Country: BR (occurrence: BR)
  Receive Date: 20130628
  Receipt Date: 20130628
  Transmission Date: 20140414
  Serious: Yes (Other)
  Sender: FDA-Public Use
  Company Number: BR-AMGEN-BRASP2013045606

PATIENT
  Age: 46 Year
  Sex: Male
  Weight: 104 kg

DRUGS (3)
  1. ENBREL [Suspect]
     Indication: PSORIATIC ARTHROPATHY
     Dosage: 50 MG, WEEKLY
     Route: 058
     Dates: start: 20130412
  2. ENDOFOLIN [Concomitant]
     Dosage: UNK
  3. TECNOMET                           /00113801/ [Concomitant]
     Dosage: UNK

REACTIONS (1)
  - Bone disorder [Unknown]
